FAERS Safety Report 8920210 (Version 2)
Quarter: 2012Q4

REPORT INFORMATION
  Report Type: 
  Country: US (occurrence: US)
  Receive Date: 20121122
  Receipt Date: 20121130
  Transmission Date: 20130627
  Serious: Yes (Hospitalization, Other)
  Sender: FDA-Public Use
  Company Number: US-ROCHE-1155766

PATIENT
  Age: 43 Year
  Sex: Female

DRUGS (2)
  1. ACTEMRA [Suspect]
     Indication: RHEUMATOID ARTHRITIS
     Route: 042
     Dates: start: 20120813, end: 201211
  2. MTX [Concomitant]
     Dosage: cc
     Route: 058

REACTIONS (4)
  - Heart rate increased [Unknown]
  - Chest pain [Unknown]
  - Infusion related reaction [Unknown]
  - Uveitis [Unknown]
